FAERS Safety Report 7594949-9 (Version None)
Quarter: 2011Q3

REPORT INFORMATION
  Report Type: 
  Country: None (occurrence: None)
  Receive Date: 20110707
  Receipt Date: 20110624
  Transmission Date: 20111222
  Serious: Yes (Life-Threatening, Hospitalization)
  Sender: FDA-Public Use
  Company Number: JP-CELGENEUS-TAJPN-10-0775

PATIENT
  Sex: Female
  Weight: 57 kg

DRUGS (21)
  1. MORPHINE HCL ELIXIR [Concomitant]
     Indication: MYALGIA
     Dosage: 50 MILLIGRAM
     Route: 065
     Dates: start: 20101224
  2. ABRAXANE [Suspect]
     Dosage: 240 MILLIGRAM
     Route: 050
     Dates: start: 20110218, end: 20110218
  3. GRAN [Concomitant]
     Dosage: 150 MICROGRAM
     Route: 065
     Dates: start: 20110324, end: 20110327
  4. FIRSTCIN [Concomitant]
     Dosage: 2 GRAM
     Route: 065
     Dates: start: 20101225
  5. GRAN [Concomitant]
     Route: 065
     Dates: start: 20110225, end: 20110228
  6. MEROPENEM [Concomitant]
     Indication: ANTI-INFECTIVE THERAPY
     Route: 065
     Dates: start: 20101228, end: 20101231
  7. ABRAXANE [Suspect]
     Dosage: 240 MILLIGRAM
     Route: 050
     Dates: start: 20110318, end: 20110318
  8. MAGMITT [Concomitant]
     Dosage: 990 MILLIGRAM
     Route: 048
  9. MORPHINE HCL ELIXIR [Concomitant]
     Dosage: 20 MILLIGRAM
     Route: 065
     Dates: start: 20101230, end: 20101231
  10. GRAN [Concomitant]
     Dosage: 150 MICROGRAM
     Route: 065
     Dates: start: 20101225
  11. GRAN [Concomitant]
     Route: 065
     Dates: start: 20110124, end: 20110128
  12. ABRAXANE [Suspect]
     Indication: BREAST CANCER METASTATIC
     Dosage: 300 MILLIGRAM
     Route: 050
     Dates: start: 20101221, end: 20101221
  13. ABRAXANE [Suspect]
     Dosage: 240 MILLIGRAM
     Route: 050
     Dates: start: 20110117, end: 20110117
  14. MUCOSTA [Concomitant]
     Dosage: 300 MILLIGRAM
     Route: 048
  15. FIRSTCIN [Concomitant]
     Dosage: 2 GRAM
     Route: 065
     Dates: start: 20110323, end: 20110327
  16. OXYCONTIN [Concomitant]
     Indication: MYALGIA
     Dosage: 20 MILLIGRAM
     Route: 048
  17. FEMARA [Concomitant]
     Indication: BREAST CANCER METASTATIC
     Dosage: 2.5 MILLIGRAM
     Route: 048
     Dates: start: 20100401
  18. METHYCOBAL [Concomitant]
     Indication: PERIPHERAL SENSORY NEUROPATHY
     Dosage: 1500 MICROGRAM
     Route: 048
  19. FAMOTIDINE [Concomitant]
     Dosage: 40 MILLIGRAM
     Route: 048
  20. ETODOLAC [Concomitant]
     Dosage: 400 MILLIGRAM
     Route: 048
  21. OXINORM [Concomitant]
     Indication: MYALGIA
     Route: 048

REACTIONS (4)
  - WHITE BLOOD CELL COUNT DECREASED [None]
  - NEUTROPHIL COUNT DECREASED [None]
  - FEBRILE NEUTROPENIA [None]
  - MYALGIA [None]
